FAERS Safety Report 7700181-8 (Version None)
Quarter: 2011Q3

REPORT INFORMATION
  Report Type: 
  Country: None (occurrence: None)
  Receive Date: 20110822
  Receipt Date: 20110523
  Transmission Date: 20111222
  Serious: No
  Sender: FDA-Public Use
  Company Number: US-PFIZER INC-2011106308

PATIENT
  Sex: Male
  Weight: 13.605 kg

DRUGS (1)
  1. CHILDREN'S ADVIL COLD [Suspect]
     Indication: PYREXIA
     Dosage: UNK
     Route: 048
     Dates: start: 20110516, end: 20110517

REACTIONS (1)
  - DRUG INEFFECTIVE [None]
